FAERS Safety Report 7034937-4 (Version None)
Quarter: 2010Q4

REPORT INFORMATION
  Report Type: 
  Country: None (occurrence: None)
  Receive Date: 20101008
  Receipt Date: 20101004
  Transmission Date: 20110411
  Serious: Yes (Death)
  Sender: FDA-Public Use
  Company Number: ES-US-EMD SERONO, INC.-7018617

PATIENT
  Age: 62 Year
  Sex: Female

DRUGS (3)
  1. REBIF [Suspect]
     Indication: MULTIPLE SCLEROSIS
     Route: 058
     Dates: start: 20091109, end: 20100401
  2. DIAZEPAM [Concomitant]
     Indication: VERTIGO
     Route: 048
  3. DOMPERIDONE [Concomitant]
     Indication: NAUSEA
     Route: 048

REACTIONS (1)
  - CENTRAL NERVOUS SYSTEM LYMPHOMA [None]
